FAERS Safety Report 9213645 (Version 1)
Quarter: 2013Q2

REPORT INFORMATION
  Report Type: Spontaneous
  Country: US (occurrence: US)
  Receive Date: 20130405
  Receipt Date: 20130405
  Transmission Date: 20140414
  Serious: Yes (Other)
  Sender: FDA-Public Use
  Company Number: US-ELI_LILLY_AND_COMPANY-US201106003879

PATIENT
  Age: 90 Year
  Sex: Female
  Weight: 61.2 kg

DRUGS (16)
  1. FORTEO [Suspect]
     Indication: OSTEOPOROSIS
     Dosage: 20 UG, QD
     Route: 065
     Dates: start: 201106
  2. FORTEO [Suspect]
     Dosage: 20 UG, QD
     Route: 065
  3. FORTEO [Suspect]
     Dosage: 20 UG, QD
     Route: 065
  4. FORTEO [Suspect]
     Dosage: 20 UG, QD
     Route: 065
  5. FORTEO [Suspect]
     Dosage: 20 UG, QD
     Route: 065
  6. FORTEO [Suspect]
     Dosage: 20 UG, QD
     Route: 065
  7. WARFARIN [Concomitant]
  8. SIMVASTATIN [Concomitant]
     Dosage: 20 MG, EACH EVENING
  9. XANAX [Concomitant]
     Dosage: 0.25 MG, EACH EVENING
  10. SYNTHROID [Concomitant]
     Dosage: 75 MG, QD
  11. COREG [Concomitant]
     Dosage: 12.5 MG, BID
  12. LASIX [Concomitant]
     Dosage: 40 MG, QD
  13. POTASSIUM [Concomitant]
     Dosage: 20 UG, QD
  14. FISH OIL [Concomitant]
     Dosage: UNK, TID
  15. VITAMIN B12 [Concomitant]
     Dosage: 1000 UG, QD
     Route: 048
  16. TYLENOL                                 /SCH/ [Concomitant]

REACTIONS (38)
  - Aortic valve incompetence [Unknown]
  - Neoplasm malignant [Unknown]
  - Cardiac flutter [Unknown]
  - Pulmonary valve incompetence [Unknown]
  - Tricuspid valve incompetence [Not Recovered/Not Resolved]
  - Mass [Unknown]
  - Back pain [Not Recovered/Not Resolved]
  - Burning sensation [Unknown]
  - Rubber sensitivity [Unknown]
  - Fall [Recovered/Resolved]
  - Body height decreased [Unknown]
  - Fear [Unknown]
  - Pain in extremity [Unknown]
  - Gait disturbance [Unknown]
  - Pain in extremity [Unknown]
  - Pain in jaw [Unknown]
  - Musculoskeletal disorder [Unknown]
  - Weight decreased [Unknown]
  - Spinal deformity [Unknown]
  - Back disorder [Unknown]
  - Injection site haemorrhage [Unknown]
  - Hand fracture [Unknown]
  - Memory impairment [Unknown]
  - Fatigue [Unknown]
  - Fear [Unknown]
  - Mood altered [Unknown]
  - Personality change [Unknown]
  - Feeling abnormal [Unknown]
  - Confusional state [Unknown]
  - Arrhythmia [Unknown]
  - Fall [Unknown]
  - Pruritus [Unknown]
  - Rash [Not Recovered/Not Resolved]
  - Depression [Unknown]
  - Pain [Unknown]
  - Asthenia [Unknown]
  - Muscle spasms [Not Recovered/Not Resolved]
  - Drug dose omission [Unknown]
